FAERS Safety Report 23249404 (Version 2)
Quarter: 2023Q4

REPORT INFORMATION
  Report Type: Spontaneous
  Country: FR (occurrence: FR)
  Receive Date: 20231201
  Receipt Date: 20231221
  Transmission Date: 20240110
  Serious: Yes (Hospitalization)
  Sender: FDA-Public Use
  Company Number: None

PATIENT
  Age: 11 Year
  Sex: Male
  Weight: 71 kg

DRUGS (25)
  1. CYCLOPHOSPHAMIDE [Suspect]
     Active Substance: CYCLOPHOSPHAMIDE
     Indication: Burkitt^s lymphoma
     Dosage: 375 MG/M2
     Route: 065
     Dates: start: 20230902, end: 20230910
  2. CYCLOPHOSPHAMIDE [Suspect]
     Active Substance: CYCLOPHOSPHAMIDE
     Dosage: 250 MG/M2
     Route: 065
     Dates: start: 20230920, end: 20230920
  3. CYCLOPHOSPHAMIDE [Suspect]
     Active Substance: CYCLOPHOSPHAMIDE
     Dosage: 250 MG/M2
     Route: 065
     Dates: start: 20231011, end: 20231011
  4. CYCLOPHOSPHAMIDE [Suspect]
     Active Substance: CYCLOPHOSPHAMIDE
     Dosage: 375 MG/M2
     Route: 065
     Dates: start: 20230910, end: 20230910
  5. VINCRISTINE SULFATE [Suspect]
     Active Substance: VINCRISTINE SULFATE
     Indication: Burkitt^s lymphoma
     Dosage: 2 MG/M2
     Route: 065
     Dates: start: 20230920, end: 20230920
  6. VINCRISTINE SULFATE [Suspect]
     Active Substance: VINCRISTINE SULFATE
     Dosage: 1 MG/M2
     Route: 065
     Dates: start: 20230910, end: 20230910
  7. VINCRISTINE SULFATE [Suspect]
     Active Substance: VINCRISTINE SULFATE
     Dosage: 2 MG/M2
     Route: 065
     Dates: start: 20231011, end: 20231011
  8. RITUXIMAB [Suspect]
     Active Substance: RITUXIMAB
     Indication: Burkitt^s lymphoma
     Dosage: 375 MG/M2, (MAMMAL/HAMSTER/CHO CELLS)
     Route: 065
     Dates: start: 20230920, end: 20230920
  9. RITUXIMAB [Suspect]
     Active Substance: RITUXIMAB
     Dosage: 375 MG/M2, (MAMMAL/HAMSTER/CHO CELLS)
     Route: 065
     Dates: start: 20230910, end: 20230910
  10. RITUXIMAB [Suspect]
     Active Substance: RITUXIMAB
     Dosage: 375 MG/M2, (MAMMAL/HAMSTER/CHO CELLS)
     Route: 065
     Dates: start: 20231011, end: 20231011
  11. CYTARABINE [Suspect]
     Active Substance: CYTARABINE
     Indication: Burkitt^s lymphoma
     Dosage: 30 MG
     Route: 065
     Dates: start: 20230920, end: 20230920
  12. CYTARABINE [Suspect]
     Active Substance: CYTARABINE
     Dosage: 30 MG
     Route: 065
     Dates: start: 20230902, end: 20230902
  13. CYTARABINE [Suspect]
     Active Substance: CYTARABINE
     Dosage: 30 MG
     Route: 065
     Dates: start: 20231011, end: 20231011
  14. CYTARABINE [Suspect]
     Active Substance: CYTARABINE
     Dosage: 30 MG
     Route: 065
     Dates: start: 20230910, end: 20230910
  15. METHOTREXATE [Suspect]
     Active Substance: METHOTREXATE
     Indication: Burkitt^s lymphoma
     Dosage: 15 MG
     Route: 065
     Dates: start: 20230910, end: 20230910
  16. METHOTREXATE [Suspect]
     Active Substance: METHOTREXATE
     Dosage: 8000 MG/M2
     Route: 065
     Dates: start: 20230920, end: 20230920
  17. METHOTREXATE [Suspect]
     Active Substance: METHOTREXATE
     Dosage: 8000 MG/M2
     Route: 065
     Dates: start: 20231011, end: 20231011
  18. METHOTREXATE [Suspect]
     Active Substance: METHOTREXATE
     Dosage: 15 MG
     Route: 065
     Dates: start: 20231011, end: 20231011
  19. METHOTREXATE [Suspect]
     Active Substance: METHOTREXATE
     Dosage: 15 MG
     Route: 065
     Dates: start: 20230920, end: 20230920
  20. HYDROCORTISONE ACETATE [Suspect]
     Active Substance: HYDROCORTISONE ACETATE
     Indication: Burkitt^s lymphoma
     Dosage: 15 MG
     Route: 065
     Dates: start: 20230910, end: 20230910
  21. HYDROCORTISONE ACETATE [Suspect]
     Active Substance: HYDROCORTISONE ACETATE
     Dosage: 15 MG
     Route: 065
     Dates: start: 20230920, end: 20230920
  22. HYDROCORTISONE ACETATE [Suspect]
     Active Substance: HYDROCORTISONE ACETATE
     Dosage: 15 MG
     Route: 065
     Dates: start: 20231011, end: 20231011
  23. Calcidose [Concomitant]
     Dosage: UNK, CHOLECALCIFEROL CONCENTRATE, POWDER FORM
     Route: 065
  24. PIPERACILLIN SODIUM\TAZOBACTAM SODIUM [Concomitant]
     Active Substance: PIPERACILLIN SODIUM\TAZOBACTAM SODIUM
     Dosage: UNK
     Route: 065
  25. FUROSEMIDE [Concomitant]
     Active Substance: FUROSEMIDE
     Dosage: UNK
     Route: 065

REACTIONS (1)
  - Visual acuity reduced [Not Recovered/Not Resolved]

NARRATIVE: CASE EVENT DATE: 20230910
